FAERS Safety Report 9370298 (Version 1)
Quarter: 2013Q2

REPORT INFORMATION
  Report Type: Spontaneous
  Country: US (occurrence: US)
  Receive Date: 20130626
  Receipt Date: 20130626
  Transmission Date: 20140414
  Serious: Yes (Disabling, Other)
  Sender: FDA-Public Use
  Company Number: US-UCBSA-089509

PATIENT
  Sex: Male

DRUGS (1)
  1. KEPPRA XR [Suspect]
     Indication: CONVULSION
     Dosage: 750 MG 2/DAILY

REACTIONS (2)
  - Cerebrovascular accident [Not Recovered/Not Resolved]
  - Walking disability [Not Recovered/Not Resolved]
